FAERS Safety Report 6352146-9 (Version None)
Quarter: 2009Q3

REPORT INFORMATION
  Report Type: 
  Country: None (occurrence: None)
  Receive Date: 20090912
  Receipt Date: 20090622
  Transmission Date: 20100115
  Serious: No
  Sender: FDA-Public Use
  Company Number: US-ABBOTT-07P-163-0431227-00

PATIENT
  Sex: Male
  Weight: 125 kg

DRUGS (7)
  1. HUMIRA [Suspect]
     Indication: RHEUMATOID ARTHRITIS
     Route: 058
     Dates: start: 20071001
  2. LEVOTHYROXINE SODIUM [Concomitant]
     Indication: HYPOTHYROIDISM
  3. PAROXETINE HCL [Concomitant]
     Indication: DRUG USE FOR UNKNOWN INDICATION
  4. UNKNOWN BLOOD PRESSURE MEDICATION [Concomitant]
     Indication: HYPERTENSION
  5. UNKNOWN MEDICATIONS FOR CHOLESTEROL TIMES TWO [Concomitant]
     Indication: BLOOD CHOLESTEROL
  6. FLINTSTONE VITAMIN [Concomitant]
     Indication: VITAMIN SUPPLEMENTATION
  7. CALCIUM CITRATE [Concomitant]
     Indication: VITAMIN SUPPLEMENTATION

REACTIONS (2)
  - DRUG DELIVERY SYSTEM MALFUNCTION [None]
  - INCORRECT DOSE ADMINISTERED [None]
